FAERS Safety Report 5819216-2 (Version None)
Quarter: 2008Q3

REPORT INFORMATION
  Report Type: 
  Country: None (occurrence: None)
  Receive Date: 20080721
  Receipt Date: 20080721
  Transmission Date: 20090109
  Serious: Yes (Hospitalization)
  Sender: FDA-Public Use
  Company Number: None

PATIENT
  Age: 78 Year
  Sex: Male

DRUGS (2)
  1. LISINOPRIL [Suspect]
     Indication: HYPERTENSION
     Dosage: 20 MG BID PO
     Route: 048
     Dates: start: 20080708
  2. METOPROLOL [Suspect]
     Dosage: 100 MG BID PO
     Route: 048
     Dates: start: 20070501, end: 20080716

REACTIONS (7)
  - ASTHENIA [None]
  - DRUG ADMINISTRATION ERROR [None]
  - FATIGUE [None]
  - HYPOTENSION [None]
  - LOSS OF CONSCIOUSNESS [None]
  - SYNCOPE [None]
  - WEIGHT DECREASED [None]
